FAERS Safety Report 14261701 (Version 4)
Quarter: 2020Q3

REPORT INFORMATION
  Report Type: Other
  Country: CA (occurrence: CA)
  Receive Date: 20171208
  Receipt Date: 20200924
  Transmission Date: 20201102
  Serious: Yes (Other)
  Sender: FDA-Public Use
  Company Number: CA-APOTEX-2017AP022104

PATIENT
  Age: 81 Year
  Sex: Male

DRUGS (1)
  1. ATORVASTATIN [Suspect]
     Active Substance: ATORVASTATIN
     Indication: ARTERIOSCLEROSIS
     Dosage: 40 MG, UNK
     Route: 065

REACTIONS (2)
  - Immune-mediated myositis [Recovered/Resolved]
  - Necrotising myositis [Recovered/Resolved]
